FAERS Safety Report 16934796 (Version 1)
Quarter: 2019Q4

REPORT INFORMATION
  Report Type: Spontaneous
  Country: TR (occurrence: TR)
  Receive Date: 20191018
  Receipt Date: 20191018
  Transmission Date: 20200122
  Serious: Yes (Other)
  Sender: FDA-Public Use
  Company Number: TR-TEVA-2019-TR-1125338

PATIENT
  Sex: Female

DRUGS (3)
  1. DEPAKIN [Concomitant]
     Active Substance: VALPROATE SODIUM
     Indication: EPILEPSY
  2. FLAGYL [Concomitant]
     Active Substance: METRONIDAZOLE\METRONIDAZOLE HYDROCHLORIDE
  3. TETRADOX 100 MG CAPSULE [Suspect]
     Active Substance: DOXYCYCLINE
     Dosage: 200 MILLIGRAM DAILY; 100 MG CAPSULE
     Route: 048
     Dates: start: 20191001, end: 20191004

REACTIONS (1)
  - Seizure [Recovered/Resolved]

NARRATIVE: CASE EVENT DATE: 201910
